FAERS Safety Report 21056568 (Version 1)
Quarter: 2022Q3

REPORT INFORMATION
  Report Type: Spontaneous
  Country: US (occurrence: US)
  Receive Date: 20220708
  Receipt Date: 20220708
  Transmission Date: 20221027
  Serious: No
  Sender: FDA-Public Use
  Company Number: US-ALLERGAN-2212911US

PATIENT

DRUGS (1)
  1. QULIPTA [Suspect]
     Active Substance: ATOGEPANT
     Indication: Product used for unknown indication

REACTIONS (5)
  - Headache [Unknown]
  - Arthralgia [Unknown]
  - Back pain [Unknown]
  - Feeling abnormal [Unknown]
  - Dizziness [Unknown]
